FAERS Safety Report 20108595 (Version 1)
Quarter: 2021Q4

REPORT INFORMATION
  Report Type: Spontaneous
  Country: US (occurrence: None)
  Receive Date: 20211123
  Receipt Date: 20211123
  Transmission Date: 20220303
  Serious: Yes (Hospitalization, Disabling)
  Sender: FDA-Public Use
  Company Number: None

PATIENT
  Age: 29 Year
  Sex: Female
  Weight: 58.5 kg

DRUGS (5)
  1. PREDNISONE [Suspect]
     Active Substance: PREDNISONE
     Indication: Eczema
     Dates: start: 20210210, end: 20210731
  2. HYDROCORTISONE [Suspect]
     Active Substance: HYDROCORTISONE
  3. TRIAMCINOLONE [Suspect]
     Active Substance: TRIAMCINOLONE
  4. CORTIZONE 10 [Suspect]
     Active Substance: HYDROCORTISONE
  5. BETAMETHASONE [Suspect]
     Active Substance: BETAMETHASONE

REACTIONS (4)
  - Steroid withdrawal syndrome [None]
  - Nerve injury [None]
  - Body temperature fluctuation [None]
  - Insomnia [None]

NARRATIVE: CASE EVENT DATE: 20210806
